FAERS Safety Report 18654108 (Version 1)
Quarter: 2020Q4

REPORT INFORMATION
  Report Type: Spontaneous
  Country: NL (occurrence: NL)
  Receive Date: 20201223
  Receipt Date: 20201223
  Transmission Date: 20210114
  Serious: Yes (Hospitalization)
  Sender: FDA-Public Use
  Company Number: NL-TEVA-2020-NL-1860434

PATIENT
  Age: 79 Year
  Sex: Male
  Weight: 80.5 kg

DRUGS (7)
  1. PRAVASTATINE TABLET 40MG / BRAND NAME NOT SPECIFIED [Concomitant]
     Dosage: 40 MG, THERAPY START DATE ASKU, THERAPY END DATE ASKU
  2. LISINOPRIL TABLET  5MG / BRAND NAME NOT SPECIFIED [Suspect]
     Active Substance: LISINOPRIL
     Indication: HYPERTENSION
     Dosage: 1DD 5MG
     Dates: start: 2015, end: 20201202
  3. VERAPAMIL TABLET MGA 120MG / ISOPTIN SR TABLET MGA 120MG [Concomitant]
     Dosage: 120 MG, THERAPY START DATE ASKU, THERAPY END DATE ASKU
  4. CALCIUMCARBONAAT KAUWTABLET 1,25G (500MG CA) / CALCI CHEW KAUWTABLET [Concomitant]
     Dosage: 1,25 GM, THERAPY START DATE ASKU, THERAPY END DATE ASKU
  5. ACENOCOUMAROL TABLET 1MG / BRAND NAME NOT SPECIFIED [Concomitant]
     Active Substance: ACENOCOUMAROL
     Dosage: 1 MG, THERAPY START DATE ASKU, THERAPY END DATE ASKU
  6. ALENDRONINEZUUR TABLET 70MG / BRAND NAME NOT SPECIFIED [Concomitant]
     Active Substance: ALENDRONIC ACID
     Dosage: 70 MG THERAPY START DATE ASKU, THERAPY END DATE ASKU
  7. PANTOPRAZOL TABLET MSR 40MG / BRAND NAME NOT SPECIFIED [Concomitant]
     Active Substance: PANTOPRAZOLE
     Dosage: 40 MG, THERAPY START DATE ASKU, THERAPY END DATE ASKU

REACTIONS (1)
  - Pancreatitis acute [Recovering/Resolving]

NARRATIVE: CASE EVENT DATE: 20201125
